FAERS Safety Report 21051214 (Version 1)
Quarter: 2022Q3

REPORT INFORMATION
  Report Type: Spontaneous
  Country: PL (occurrence: PL)
  Receive Date: 20220707
  Receipt Date: 20220707
  Transmission Date: 20221027
  Serious: Yes (Other)
  Sender: FDA-Public Use
  Company Number: None

PATIENT
  Age: 64 Year
  Sex: Male
  Weight: 93 kg

DRUGS (4)
  1. LEUCOVORIN CALCIUM [Suspect]
     Active Substance: LEUCOVORIN CALCIUM
     Indication: Colon cancer
     Dosage: DOSE: 200 MG/M2, UNIT DOSE 400 MG, DURATION 2 DAYS
     Route: 042
     Dates: start: 20181119, end: 20181121
  2. FLUOROURACIL [Suspect]
     Active Substance: FLUOROURACIL
     Indication: Colon cancer
     Dosage: DOSE: 600 MG/M2, UNIT DOSE 1200 MG, DURATION 2 DAYS
     Route: 042
     Dates: start: 20181119, end: 20181121
  3. FLUOROURACIL [Suspect]
     Active Substance: FLUOROURACIL
     Dosage: DOSE: 400 MG/M2, UNIT DOSE 800 MG, DURATION 2 DAYS
     Route: 042
     Dates: start: 20181119, end: 20181121
  4. IRINOTECAN [Suspect]
     Active Substance: IRINOTECAN
     Indication: Colon cancer
     Dosage: DOSE: 180MG/M2, UNIT DOSE 380 MG
     Route: 042
     Dates: start: 20181119, end: 20181119

REACTIONS (1)
  - Neutropenia [Recovering/Resolving]

NARRATIVE: CASE EVENT DATE: 20181203
